FAERS Safety Report 15536994 (Version 1)
Quarter: 2018Q4

REPORT INFORMATION
  Report Type: Report from Study
  Country: IT (occurrence: IT)
  Receive Date: 20181022
  Receipt Date: 20181022
  Transmission Date: 20190205
  Serious: Yes (Hospitalization)
  Sender: FDA-Public Use
  Company Number: IT-PFIZER INC-2018427221

PATIENT
  Age: 57 Year
  Sex: Male
  Weight: 54 kg

DRUGS (9)
  1. FLUOROURACIL. [Suspect]
     Active Substance: FLUOROURACIL
     Dosage: 507 MG, CYCLIC
     Route: 042
     Dates: start: 20180620, end: 20180620
  2. AFLIBERCEPT [Suspect]
     Active Substance: AFLIBERCEPT
     Indication: COLORECTAL CANCER
     Dosage: 244 MG, QCY
     Route: 042
     Dates: start: 20180605, end: 20180605
  3. FLUOROURACIL. [Suspect]
     Active Substance: FLUOROURACIL
     Dosage: 507 MG, CYCLIC
     Route: 040
     Dates: start: 20180605, end: 20180605
  4. AFLIBERCEPT [Suspect]
     Active Substance: AFLIBERCEPT
     Dosage: 244 MG, CYCLIC
     Route: 042
     Dates: start: 20180620, end: 20180620
  5. IRINOTECAN HCL [Suspect]
     Active Substance: IRINOTECAN HYDROCHLORIDE
     Dosage: 228.15 UNK, CYCLIC
     Route: 042
     Dates: start: 20180620, end: 20180620
  6. LEVOLEUCOVORIN CALCIUM. [Suspect]
     Active Substance: LEVOLEUCOVORIN CALCIUM
     Indication: COLORECTAL CANCER
     Dosage: UNK, CYCLIC
     Route: 042
  7. FLUOROURACIL. [Suspect]
     Active Substance: FLUOROURACIL
     Dosage: 3042 MG, CYCLIC
     Route: 042
     Dates: start: 20180620, end: 20180620
  8. IRINOTECAN HCL [Suspect]
     Active Substance: IRINOTECAN HYDROCHLORIDE
     Indication: COLORECTAL CANCER
     Dosage: 228.15 MG, CYCLIC
     Route: 042
     Dates: start: 20180605, end: 20180605
  9. FLUOROURACIL. [Suspect]
     Active Substance: FLUOROURACIL
     Indication: COLORECTAL CANCER
     Dosage: 3042 MG, CYCLIC
     Route: 042
     Dates: start: 20180605, end: 20180605

REACTIONS (1)
  - Anastomotic fistula [Recovered/Resolved]

NARRATIVE: CASE EVENT DATE: 20180710
